FAERS Safety Report 12453632 (Version 2)
Quarter: 2016Q4

REPORT INFORMATION
  Report Type: Report from Study
  Country: None (occurrence: NL)
  Receive Date: 20160609
  Receipt Date: 20161027
  Transmission Date: 20170207
  Serious: Yes (Death)
  Sender: FDA-Public Use
  Company Number: NL-ABBVIE-16P-114-1645809-00

PATIENT
  Sex: Male

DRUGS (2)
  1. DUODOPA [Suspect]
     Active Substance: CARBIDOPA\LEVODOPA
     Indication: ON AND OFF PHENOMENON
     Dosage: CD: 4.8 ML
     Route: 050
     Dates: start: 20080107, end: 2016
  2. DUODOPA [Suspect]
     Active Substance: CARBIDOPA\LEVODOPA
     Indication: PARKINSON^S DISEASE
     Dosage: MORNING DOSE: 4.8; CONTINUOUS DOSE: 5.0; EXTRA DOSE: 1.5-2.8; NIGHT DOSE: 1.9
     Route: 050
     Dates: start: 20160201, end: 20160604

REACTIONS (1)
  - Death [Fatal]
